FAERS Safety Report 9084309 (Version 1)
Quarter: 2013Q1

REPORT INFORMATION
  Report Type: Report from Study
  Country: US (occurrence: US)
  Receive Date: 20130131
  Receipt Date: 20130131
  Transmission Date: 20140127
  Serious: No
  Sender: FDA-Public Use
  Company Number: US-ABBOTT-12P-163-0998704-00

PATIENT
  Sex: Female

DRUGS (7)
  1. HUMIRA [Suspect]
     Indication: CROHN^S DISEASE
     Route: 058
     Dates: start: 20121017, end: 20121017
  2. HUMIRA [Suspect]
     Route: 058
  3. ENTOCORT [Concomitant]
     Indication: CROHN^S DISEASE
  4. ASACOL [Concomitant]
     Indication: PRODUCT USED FOR UNKNOWN INDICATION
  5. PAXIL [Concomitant]
     Indication: DEPRESSION
  6. TOPAMAX [Concomitant]
     Indication: MIGRAINE
  7. FIORICET [Concomitant]
     Indication: MIGRAINE

REACTIONS (1)
  - Adverse drug reaction [Not Recovered/Not Resolved]
